FAERS Safety Report 18086036 (Version 1)
Quarter: 2020Q3

REPORT INFORMATION
  Report Type: Report from Study
  Country: CA (occurrence: CA)
  Receive Date: 20200729
  Receipt Date: 20200729
  Transmission Date: 20201103
  Serious: Yes (Other)
  Sender: FDA-Public Use
  Company Number: CA-ACCORD-193211

PATIENT
  Age: 42 Year
  Sex: Female

DRUGS (6)
  1. ASCORBIC ACID. [Concomitant]
     Active Substance: ASCORBIC ACID
  2. COSENTYX [Suspect]
     Active Substance: SECUKINUMAB
     Indication: PSORIASIS
     Dosage: 1 EVERY 1 WEEKS
     Route: 058
  3. SIMPONI [Concomitant]
     Active Substance: GOLIMUMAB
     Indication: PSORIASIS
  4. ENBREL [Concomitant]
     Active Substance: ETANERCEPT
     Indication: PSORIASIS
  5. METHOTREXATE. [Suspect]
     Active Substance: METHOTREXATE
     Indication: PRODUCT USED FOR UNKNOWN INDICATION
  6. STELARA [Concomitant]
     Active Substance: USTEKINUMAB
     Indication: PSORIASIS

REACTIONS (12)
  - Fungal infection [Unknown]
  - Inappropriate schedule of product administration [Unknown]
  - Eye infection [Unknown]
  - Oropharyngeal pain [Unknown]
  - Headache [Unknown]
  - Pneumonia [Unknown]
  - Pollakiuria [Unknown]
  - Sinus congestion [Unknown]
  - Dysuria [Unknown]
  - Rhinorrhoea [Unknown]
  - Sinusitis [Unknown]
  - Malaise [Unknown]
